FAERS Safety Report 4782893-1 (Version None)
Quarter: 2005Q3

REPORT INFORMATION
  Report Type: 
  Country: None (occurrence: None)
  Receive Date: 20050928
  Receipt Date: 20050928
  Transmission Date: 20060218
  Serious: Yes (Hospitalization)
  Sender: FDA-Public Use
  Company Number: None

PATIENT
  Age: 76 Year
  Sex: Male
  Weight: 83.9154 kg

DRUGS (9)
  1. GATIFLOXACIN [Suspect]
     Indication: UPPER RESPIRATORY TRACT INFECTION
     Dosage: 400 MG DAILY PO
     Route: 048
     Dates: start: 20050819, end: 20050820
  2. METFORMIN [Concomitant]
  3. GLIPIZIDE [Concomitant]
  4. ALENDRONATE [Concomitant]
  5. DILTIAZEM [Concomitant]
  6. METOPROLOL [Concomitant]
  7. MIRTAZAPINE [Concomitant]
  8. OMEPRAZOLE [Concomitant]
  9. PREDNISONE [Concomitant]

REACTIONS (2)
  - BLOOD GLUCOSE INCREASED [None]
  - HYPOGLYCAEMIA [None]
